FAERS Safety Report 9331951 (Version 2)
Quarter: 2013Q4

REPORT INFORMATION
  Report Type: Spontaneous
  Country: US (occurrence: US)
  Receive Date: 20130605
  Receipt Date: 20131113
  Transmission Date: 20140711
  Serious: Yes (Death, Hospitalization)
  Sender: FDA-Public Use
  Company Number: US-B.I. PHARMACEUTICALS,INC./RIDGEFIELD-2013-BI-15604BP

PATIENT
  Age: 73 Year
  Sex: Female
  Weight: 71.21 kg

DRUGS (2)
  1. PRADAXA [Suspect]
     Indication: ANTICOAGULANT THERAPY
     Dates: start: 20110131, end: 20110820
  2. MULTAQ [Concomitant]

REACTIONS (2)
  - Cerebral haemorrhage [Fatal]
  - Road traffic accident [Unknown]
